FAERS Safety Report 11984179 (Version 2)
Quarter: 2016Q1

REPORT INFORMATION
  Report Type: Spontaneous
  Country: DE (occurrence: DE)
  Receive Date: 20160201
  Receipt Date: 20160328
  Transmission Date: 20160526
  Serious: Yes (Hospitalization, Other)
  Sender: FDA-Public Use
  Company Number: DE-JNJFOC-20160123155

PATIENT
  Age: 32 Year
  Sex: Female
  Weight: 65 kg

DRUGS (12)
  1. CLAVERSAL [Concomitant]
     Active Substance: MESALAMINE
     Dosage: 500 PER OS 2-2-2
     Route: 065
  2. REMICADE [Suspect]
     Active Substance: INFLIXIMAB
     Indication: COLITIS ULCERATIVE
     Route: 042
     Dates: start: 20071031, end: 20071115
  3. METRONIDAZOLE. [Concomitant]
     Active Substance: METRONIDAZOLE
     Route: 065
  4. CIPROFLOXACIN. [Concomitant]
     Active Substance: CIPROFLOXACIN
     Route: 065
  5. CANDIO-HERMAL [Concomitant]
     Dosage: 6X1
     Route: 065
  6. AZATHIOPRIN [Concomitant]
     Active Substance: AZATHIOPRINE
     Indication: CROHN^S DISEASE
     Dosage: 1-0-0
     Route: 065
  7. CLAVERSAL [Concomitant]
     Active Substance: MESALAMINE
     Dosage: 1-0-0
     Route: 065
  8. MESALAMINE. [Concomitant]
     Active Substance: MESALAMINE
     Dosage: 0-0-1
     Route: 065
  9. NOVALGIN [Concomitant]
     Active Substance: METAMIZOLE SODIUM
     Dosage: 4X 500 MG PER OS
     Route: 065
  10. LOESFERRON [Concomitant]
     Dosage: 1-0-0.
     Route: 065
  11. AZATHIOPRIN [Concomitant]
     Active Substance: AZATHIOPRINE
     Indication: CROHN^S DISEASE
     Route: 065
  12. MESALAMINE. [Concomitant]
     Active Substance: MESALAMINE
     Route: 065

REACTIONS (5)
  - Anaphylactic reaction [Recovered/Resolved]
  - Colitis [Recovering/Resolving]
  - Infusion related reaction [Recovered/Resolved]
  - Arthralgia [Recovered/Resolved]
  - Pyrexia [Recovered/Resolved]

NARRATIVE: CASE EVENT DATE: 200711
